FAERS Safety Report 10508635 (Version 3)
Quarter: 2015Q1

REPORT INFORMATION
  Report Type: Report from Study
  Country: JP (occurrence: JP)
  Receive Date: 20141009
  Receipt Date: 20150115
  Transmission Date: 20150720
  Serious: Yes (Hospitalization, Other)
  Sender: FDA-Public Use
  Company Number: JP-GLAXOSMITHKLINE-B0900533A

PATIENT
  Age: 48 Year
  Sex: Male

DRUGS (48)
  1. SOLU-CORTEF [Concomitant]
     Active Substance: HYDROCORTISONE SODIUM SUCCINATE
     Route: 051
     Dates: start: 20130624, end: 20130624
  2. SOLU-CORTEF [Concomitant]
     Active Substance: HYDROCORTISONE SODIUM SUCCINATE
     Route: 051
     Dates: start: 20130722, end: 20130722
  3. SOLU-CORTEF [Concomitant]
     Active Substance: HYDROCORTISONE SODIUM SUCCINATE
     Route: 051
     Dates: start: 20130729, end: 20130729
  4. ACETAMINOPHEN. [Concomitant]
     Active Substance: ACETAMINOPHEN
     Dosage: 1.5 G, UNK
     Route: 065
     Dates: start: 20130722, end: 20130722
  5. OFATUMUMAB [Suspect]
     Active Substance: OFATUMUMAB
     Route: 041
     Dates: start: 20130701, end: 20130701
  6. OFATUMUMAB [Suspect]
     Active Substance: OFATUMUMAB
     Route: 041
     Dates: start: 20130925, end: 20130925
  7. CHLOR-TRIMETON [Concomitant]
     Active Substance: CHLORPHENIRAMINE MALEATE
     Dosage: 10 MG, UNK
     Dates: start: 20130708, end: 20130708
  8. CHLOR-TRIMETON [Concomitant]
     Active Substance: CHLORPHENIRAMINE MALEATE
     Dosage: 10 MG, UNK
     Dates: start: 20130729, end: 20130729
  9. CRAVIT [Concomitant]
     Active Substance: LEVOFLOXACIN
     Indication: INFECTION PROPHYLAXIS
     Route: 048
  10. VALTREX [Concomitant]
     Active Substance: VALACYCLOVIR HYDROCHLORIDE
     Indication: INFECTION PROPHYLAXIS
     Route: 048
  11. OFATUMUMAB [Suspect]
     Active Substance: OFATUMUMAB
     Indication: CHRONIC LYMPHOCYTIC LEUKAEMIA
     Route: 041
     Dates: start: 20130610, end: 20130610
  12. OFATUMUMAB [Suspect]
     Active Substance: OFATUMUMAB
     Route: 041
     Dates: start: 20130617, end: 20130617
  13. OFATUMUMAB [Suspect]
     Active Substance: OFATUMUMAB
     Route: 041
     Dates: start: 20130708, end: 20130708
  14. SOLU-CORTEF [Concomitant]
     Active Substance: HYDROCORTISONE SODIUM SUCCINATE
     Route: 051
     Dates: start: 20130827, end: 20130827
  15. SOLU-CORTEF [Concomitant]
     Active Substance: HYDROCORTISONE SODIUM SUCCINATE
     Route: 051
     Dates: start: 20130925, end: 20130925
  16. ACETAMINOPHEN. [Concomitant]
     Active Substance: ACETAMINOPHEN
     Indication: PREMEDICATION
     Dosage: 1.5 G, UNK
     Route: 065
     Dates: start: 20130610, end: 20130610
  17. ACETAMINOPHEN. [Concomitant]
     Active Substance: ACETAMINOPHEN
     Dosage: 1.5 G, UNK
     Route: 065
     Dates: start: 20130617, end: 20130617
  18. ACETAMINOPHEN. [Concomitant]
     Active Substance: ACETAMINOPHEN
     Dosage: 1.5 G, UNK
     Route: 065
     Dates: start: 20130715, end: 20130715
  19. ACETAMINOPHEN. [Concomitant]
     Active Substance: ACETAMINOPHEN
     Dosage: 1.5 G, UNK
     Route: 065
     Dates: start: 20130827, end: 20130827
  20. CHLOR-TRIMETON [Concomitant]
     Active Substance: CHLORPHENIRAMINE MALEATE
     Dosage: 10 MG, UNK
     Dates: start: 20130624, end: 20130624
  21. CHLOR-TRIMETON [Concomitant]
     Active Substance: CHLORPHENIRAMINE MALEATE
     Dosage: 10 MG, UNK
     Dates: start: 20130827, end: 20130827
  22. CHLOR-TRIMETON [Concomitant]
     Active Substance: CHLORPHENIRAMINE MALEATE
     Dosage: 10 MG, UNK
     Dates: start: 20131022, end: 20131022
  23. OFATUMUMAB [Suspect]
     Active Substance: OFATUMUMAB
     Route: 041
     Dates: start: 20130827, end: 20130827
  24. ACETAMINOPHEN. [Concomitant]
     Active Substance: ACETAMINOPHEN
     Dosage: 1.5 G, UNK
     Route: 065
     Dates: start: 20130729, end: 20130729
  25. CHLOR-TRIMETON [Concomitant]
     Active Substance: CHLORPHENIRAMINE MALEATE
     Dosage: 10 MG, UNK
     Dates: start: 20130617, end: 20130617
  26. CHLOR-TRIMETON [Concomitant]
     Active Substance: CHLORPHENIRAMINE MALEATE
     Dosage: 10 MG, UNK
     Dates: start: 20130722, end: 20130722
  27. OFATUMUMAB [Suspect]
     Active Substance: OFATUMUMAB
     Route: 041
     Dates: start: 20130624, end: 20130624
  28. OFATUMUMAB [Suspect]
     Active Substance: OFATUMUMAB
     Route: 041
     Dates: start: 20130715, end: 20130715
  29. OFATUMUMAB [Suspect]
     Active Substance: OFATUMUMAB
     Route: 041
     Dates: start: 20131022, end: 20131022
  30. SOLU-MEDROL [Suspect]
     Active Substance: METHYLPREDNISOLONE SODIUM SUCCINATE
     Indication: NERVOUS SYSTEM DISORDER
     Route: 042
  31. SOLU-CORTEF [Concomitant]
     Active Substance: HYDROCORTISONE SODIUM SUCCINATE
     Indication: PREMEDICATION
     Route: 051
     Dates: start: 20130610, end: 20130610
  32. SOLU-CORTEF [Concomitant]
     Active Substance: HYDROCORTISONE SODIUM SUCCINATE
     Route: 051
     Dates: start: 20130701, end: 20130701
  33. SOLU-CORTEF [Concomitant]
     Active Substance: HYDROCORTISONE SODIUM SUCCINATE
     Route: 051
     Dates: start: 20130708, end: 20130708
  34. BAKTAR [Concomitant]
     Active Substance: SULFAMETHOXAZOLE\TRIMETHOPRIM
     Indication: INFECTION PROPHYLAXIS
     Route: 048
  35. OFATUMUMAB [Suspect]
     Active Substance: OFATUMUMAB
     Route: 041
     Dates: start: 20130722, end: 20130722
  36. SOLU-CORTEF [Concomitant]
     Active Substance: HYDROCORTISONE SODIUM SUCCINATE
     Route: 051
     Dates: start: 20130617, end: 20130617
  37. SOLU-CORTEF [Concomitant]
     Active Substance: HYDROCORTISONE SODIUM SUCCINATE
     Route: 051
     Dates: start: 20130715, end: 20130715
  38. SOLU-CORTEF [Concomitant]
     Active Substance: HYDROCORTISONE SODIUM SUCCINATE
     Route: 051
     Dates: start: 20131022, end: 20131022
  39. CHLOR-TRIMETON [Concomitant]
     Active Substance: CHLORPHENIRAMINE MALEATE
     Dosage: 10 MG, UNK
     Dates: start: 20130701, end: 20130701
  40. CHLOR-TRIMETON [Concomitant]
     Active Substance: CHLORPHENIRAMINE MALEATE
     Dosage: 10 MG, UNK
     Dates: start: 20130925, end: 20130925
  41. ACETAMINOPHEN. [Concomitant]
     Active Substance: ACETAMINOPHEN
     Dosage: 1.5 G, UNK
     Route: 065
     Dates: start: 20130701, end: 20130701
  42. ACETAMINOPHEN. [Concomitant]
     Active Substance: ACETAMINOPHEN
     Dosage: 1.5 G, UNK
     Route: 065
     Dates: start: 20130708, end: 20130708
  43. ACETAMINOPHEN. [Concomitant]
     Active Substance: ACETAMINOPHEN
     Dosage: 1.5 G, UNK
     Route: 065
     Dates: start: 20130925, end: 20130925
  44. CHLOR-TRIMETON [Concomitant]
     Active Substance: CHLORPHENIRAMINE MALEATE
     Indication: PREMEDICATION
     Dosage: 10 MG, UNK
     Dates: start: 20130610, end: 20130610
  45. OFATUMUMAB [Suspect]
     Active Substance: OFATUMUMAB
     Route: 041
     Dates: start: 20130729, end: 20130729
  46. ACETAMINOPHEN. [Concomitant]
     Active Substance: ACETAMINOPHEN
     Dosage: 1.5 G, UNK
     Route: 065
     Dates: start: 20130624, end: 20130624
  47. ACETAMINOPHEN. [Concomitant]
     Active Substance: ACETAMINOPHEN
     Dosage: 1.5 G, UNK
     Route: 065
     Dates: start: 20131022, end: 20131022
  48. CHLOR-TRIMETON [Concomitant]
     Active Substance: CHLORPHENIRAMINE MALEATE
     Dosage: 10 MG, UNK
     Dates: start: 20130715, end: 20130715

REACTIONS (2)
  - Pneumonia [Recovering/Resolving]
  - Neutrophil count decreased [Recovered/Resolved]

NARRATIVE: CASE EVENT DATE: 20130902
